FAERS Safety Report 9108146 (Version 5)
Quarter: 2013Q2

REPORT INFORMATION
  Report Type: Spontaneous
  Country: JP (occurrence: JP)
  Receive Date: 20130221
  Receipt Date: 20130604
  Transmission Date: 20140414
  Serious: Yes (Life-Threatening)
  Sender: FDA-Public Use
  Company Number: JP-SANOFI-AVENTIS-2013SA014900

PATIENT
  Age: 60 Year
  Sex: Male
  Weight: 60 kg

DRUGS (12)
  1. MYSLEE [Suspect]
     Indication: INSOMNIA
     Route: 048
     Dates: start: 20120816, end: 20121206
  2. DANTRIUM [Suspect]
     Indication: SPINAL LIGAMENT OSSIFICATION
     Dosage: STRENGTH: 25 MG
     Route: 048
     Dates: start: 20120903, end: 20121221
  3. LYRICA [Suspect]
     Indication: CONSTIPATION
     Route: 048
     Dates: start: 20121016, end: 20121221
  4. LYRICA [Suspect]
     Indication: PROCTALGIA
     Route: 048
     Dates: start: 20121016, end: 20121221
  5. HERBAL PREPARATION [Suspect]
     Indication: SPINAL LIGAMENT OSSIFICATION
     Route: 048
     Dates: start: 20121112, end: 20121221
  6. HERBAL PREPARATION [Suspect]
     Indication: CONSTIPATION
     Route: 048
     Dates: start: 20121016, end: 20121221
  7. HERBAL PREPARATION [Suspect]
     Indication: PROCTALGIA
     Route: 048
     Dates: start: 20121016, end: 20121221
  8. LENDORMIN [Suspect]
     Indication: INSOMNIA
     Route: 048
     Dates: start: 20121207, end: 20121209
  9. MEILAX [Suspect]
     Indication: INSOMNIA
     Route: 048
     Dates: start: 20121213, end: 20121221
  10. RIVOTRIL [Suspect]
     Indication: INSOMNIA
     Route: 048
     Dates: start: 20121217, end: 20121219
  11. RISPERDAL [Concomitant]
     Indication: INSOMNIA
     Dates: start: 20121210, end: 20121212
  12. BENZALIN [Concomitant]
     Indication: INSOMNIA
     Dates: start: 20121210, end: 20121212

REACTIONS (1)
  - Interstitial lung disease [Recovering/Resolving]
